FAERS Safety Report 12714162 (Version 1)
Quarter: 2016Q3

REPORT INFORMATION
  Report Type: Spontaneous
  Country: US (occurrence: US)
  Receive Date: 20160905
  Receipt Date: 20160905
  Transmission Date: 20161109
  Serious: No
  Sender: FDA-Public Use
  Company Number: US-JAZZ-2016-US-008752

PATIENT
  Sex: Female

DRUGS (20)
  1. XYREM [Suspect]
     Active Substance: SODIUM OXYBATE
     Dosage: 3.25 G, FIRST DOSE
     Route: 048
     Dates: start: 201505, end: 201509
  2. ADDERALL [Concomitant]
     Active Substance: AMPHETAMINE ASPARTATE\AMPHETAMINE SULFATE\DEXTROAMPHETAMINE SACCHARATE\DEXTROAMPHETAMINE SULFATE
  3. XYREM [Suspect]
     Active Substance: SODIUM OXYBATE
     Dosage: 3 G, SECOND DOSE
     Route: 048
     Dates: start: 201505, end: 201509
  4. HYDROCHLOROTHIAZIDE. [Suspect]
     Active Substance: HYDROCHLOROTHIAZIDE
     Indication: PRODUCT USED FOR UNKNOWN INDICATION
  5. GABAPENTIN. [Concomitant]
     Active Substance: GABAPENTIN
  6. XYREM [Suspect]
     Active Substance: SODIUM OXYBATE
     Dosage: 3 G SECOND DOSE
     Route: 048
     Dates: start: 201509
  7. ADDERALL [Concomitant]
     Active Substance: AMPHETAMINE ASPARTATE\AMPHETAMINE SULFATE\DEXTROAMPHETAMINE SACCHARATE\DEXTROAMPHETAMINE SULFATE
  8. XYREM [Suspect]
     Active Substance: SODIUM OXYBATE
     Indication: NARCOLEPSY
     Dosage: 2.25 G, BID
     Route: 048
     Dates: start: 201106, end: 201106
  9. PLAQUENIL [Concomitant]
     Active Substance: HYDROXYCHLOROQUINE SULFATE
  10. ESTRADIOL. [Concomitant]
     Active Substance: ESTRADIOL
  11. MELOXICAM. [Concomitant]
     Active Substance: MELOXICAM
  12. ADVAIR HFA [Concomitant]
     Active Substance: FLUTICASONE PROPIONATE\SALMETEROL XINAFOATE
  13. GABAPENTIN. [Concomitant]
     Active Substance: GABAPENTIN
  14. ROPINIROLE HCL [Concomitant]
     Active Substance: ROPINIROLE HYDROCHLORIDE
  15. XYREM [Suspect]
     Active Substance: SODIUM OXYBATE
     Indication: CATAPLEXY
     Dosage: DOSE ADJUSTMENTS
     Route: 048
  16. XYREM [Suspect]
     Active Substance: SODIUM OXYBATE
     Dosage: 4 G FIRST DOSE
     Route: 048
     Dates: start: 201509
  17. METOPROLOL TARTRATE. [Concomitant]
     Active Substance: METOPROLOL TARTRATE
  18. NUVIGIL [Concomitant]
     Active Substance: ARMODAFINIL
  19. PROAIR HFA [Concomitant]
     Active Substance: ALBUTEROL SULFATE
  20. ZOLOFT [Concomitant]
     Active Substance: SERTRALINE HYDROCHLORIDE

REACTIONS (2)
  - Blood potassium decreased [Unknown]
  - Limb injury [Unknown]
